FAERS Safety Report 10402347 (Version 1)
Quarter: 2014Q1

REPORT INFORMATION
  Report Type: Spontaneous
  Country: US (occurrence: None)
  Receive Date: 20130815
  Receipt Date: 20130815
  Transmission Date: 20141002
  Serious: Yes (Life-Threatening, Hospitalization, Other)
  Sender: FDA-Public Use
  Company Number: ADR-2013-00391

PATIENT
  Sex: Female

DRUGS (1)
  1. LIORESAL INTRATHECAL (BACLOFEN INJECTION) 2000 MCG/ML [Suspect]
     Indication: MUSCLE SPASTICITY

REACTIONS (8)
  - Infection [None]
  - Dyspnoea [None]
  - Muscle spasticity [None]
  - Tremor [None]
  - Unevaluable event [None]
  - Pneumonia [None]
  - Drug withdrawal syndrome [None]
  - Unresponsive to stimuli [None]
